FAERS Safety Report 12083990 (Version 1)
Quarter: 2016Q1

REPORT INFORMATION
  Report Type: Spontaneous
  Country: US (occurrence: None)
  Receive Date: 20160216
  Receipt Date: 20160216
  Transmission Date: 20160526
  Serious: Yes (Other)
  Sender: FDA-Public Use
  Company Number: None

PATIENT
  Age: 76 Year
  Sex: Male

DRUGS (9)
  1. PRAVASTATIN [Concomitant]
     Active Substance: PRAVASTATIN\PRAVASTATIN SODIUM
  2. TOBRAMYCIN SOLUTION FOR INHALATI 300MG/5ML AKORN [Suspect]
     Active Substance: TOBRAMYCIN
     Indication: CHRONIC OBSTRUCTIVE PULMONARY DISEASE
     Dosage: ONGOING THERAPY?1 VIAL
     Route: 055
  3. GENERIC MULTIVITAMIN [Concomitant]
  4. ALBUTEROL SULFATE SOLUTION FOR INHALATION [Concomitant]
     Active Substance: ALBUTEROL SULFATE
  5. FOLIC ACID. [Concomitant]
     Active Substance: FOLIC ACID
  6. FUROSEMIDE. [Concomitant]
     Active Substance: FUROSEMIDE
  7. MUCINEX [Concomitant]
     Active Substance: GUAIFENESIN
  8. NORVAC [Concomitant]
     Active Substance: AMLODIPINE BESYLATE
  9. TRAZODONE [Concomitant]
     Active Substance: TRAZODONE HYDROCHLORIDE

REACTIONS (2)
  - Abdominal pain upper [None]
  - Chest discomfort [None]

NARRATIVE: CASE EVENT DATE: 20160206
